FAERS Safety Report 9054791 (Version 1)
Quarter: 2013Q1

REPORT INFORMATION
  Report Type: Spontaneous
  Country: AR (occurrence: AR)
  Receive Date: 20130208
  Receipt Date: 20130208
  Transmission Date: 20140127
  Serious: Yes (Hospitalization, Other)
  Sender: FDA-Public Use
  Company Number: AR-ROXANE LABORATORIES, INC.-2013-RO-00202RO

PATIENT
  Age: 57 Year
  Sex: Male

DRUGS (5)
  1. MYCOPHENOLATE MOFETIL [Suspect]
     Indication: RENAL TRANSPLANT
     Dosage: 1500 MG
  2. LOSARTAN POTASSIUM USP [Suspect]
     Indication: HYPERTENSION
     Dosage: 50 MG
  3. FENOFIBRATE [Suspect]
     Indication: BLOOD TRIGLYCERIDES INCREASED
     Dosage: 200 MG
  4. MEPREDNISONE [Suspect]
     Indication: RENAL TRANSPLANT
     Dosage: 4 MG
  5. EZETIMIBE/SIMVASTATIN [Suspect]
     Indication: DYSLIPIDAEMIA

REACTIONS (3)
  - Febrile neutropenia [Recovered/Resolved]
  - Bone marrow failure [Unknown]
  - Blood triglycerides increased [Unknown]
